FAERS Safety Report 8048412-1 (Version None)
Quarter: 2012Q1

REPORT INFORMATION
  Report Type: 
  Country: None (occurrence: None)
  Receive Date: 20120117
  Receipt Date: 20120113
  Transmission Date: 20120608
  Serious: No
  Sender: FDA-Public Use
  Company Number: US-PFIZER INC-2011281715

PATIENT
  Sex: Female
  Weight: 56.689 kg

DRUGS (5)
  1. CHANTIX [Suspect]
     Indication: SMOKING CESSATION THERAPY
     Dosage: UNK
     Route: 048
     Dates: start: 20111115, end: 20110101
  2. CHANTIX [Suspect]
     Dosage: UNK
     Route: 048
  3. WELLBUTRIN [Concomitant]
     Dosage: UNK
  4. NIASPAN [Concomitant]
     Indication: BLOOD CHOLESTEROL ABNORMAL
     Dosage: UNK
     Route: 048
  5. CHANTIX [Suspect]
     Dosage: 0.5 MG, 1X/DAY
     Route: 048
     Dates: start: 20111225

REACTIONS (2)
  - MALAISE [None]
  - EXPIRED DRUG ADMINISTERED [None]
